FAERS Safety Report 9954179 (Version 1)
Quarter: 2014Q1

REPORT INFORMATION
  Report Type: Report from Study
  Country: US (occurrence: US)
  Receive Date: 20140304
  Receipt Date: 20140304
  Transmission Date: 20141002
  Serious: No
  Sender: FDA-Public Use
  Company Number: US-ABBVIE-13P-163-1076789-00

PATIENT
  Age: 34 Year
  Sex: Female

DRUGS (7)
  1. HUMIRA [Suspect]
     Indication: CROHN^S DISEASE
     Dates: start: 20130328
  2. HUMIRA [Suspect]
     Dates: start: 20130411
  3. PREDNISONE [Concomitant]
     Indication: PRODUCT USED FOR UNKNOWN INDICATION
     Dosage: DAILY; TAPERING OFF
  4. B12 [Concomitant]
     Indication: VITAMIN SUPPLEMENTATION
  5. IRON [Concomitant]
     Indication: MINERAL SUPPLEMENTATION
  6. CALCIUM [Concomitant]
     Indication: MINERAL SUPPLEMENTATION
  7. VIT C [Concomitant]
     Indication: VITAMIN SUPPLEMENTATION

REACTIONS (1)
  - Nausea [Recovered/Resolved]
